FAERS Safety Report 14947974 (Version 2)
Quarter: 2018Q3

REPORT INFORMATION
  Report Type: Spontaneous
  Country: US (occurrence: US)
  Receive Date: 20180529
  Receipt Date: 20180928
  Transmission Date: 20181010
  Serious: Yes (Other)
  Sender: FDA-Public Use
  Company Number: US-BAYER-2018-100558

PATIENT
  Age: 46 Year
  Sex: Female
  Weight: 114.29 kg

DRUGS (1)
  1. MIRENA [Suspect]
     Active Substance: LEVONORGESTREL
     Indication: MENORRHAGIA
     Dosage: 20 MCG/24HR, CONT
     Route: 015
     Dates: start: 2015

REACTIONS (3)
  - Device dislocation [None]
  - Vaginal discharge [None]
  - Medical device discomfort [None]

NARRATIVE: CASE EVENT DATE: 20180524
